FAERS Safety Report 7221951-9 (Version None)
Quarter: 2011Q1

REPORT INFORMATION
  Report Type: 
  Country: None (occurrence: None)
  Receive Date: 20110112
  Receipt Date: 20110104
  Transmission Date: 20110831
  Serious: Yes (Hospitalization)
  Sender: FDA-Public Use
  Company Number: B0691983A

PATIENT
  Sex: Female

DRUGS (9)
  1. CARDENSIEL [Concomitant]
     Dosage: 2.5MG PER DAY
     Route: 065
  2. LASILIX RETARD [Concomitant]
     Dosage: 60MG PER DAY
     Route: 065
  3. DIFFU K [Suspect]
     Dosage: 3.6G PER DAY
     Route: 065
     Dates: end: 20101117
  4. PREZISTA [Concomitant]
     Indication: HIV INFECTION
     Dosage: 400MG TWICE PER DAY
     Route: 065
  5. RAMIPRIL [Suspect]
     Dosage: 1.25MG PER DAY
     Route: 048
     Dates: end: 20101117
  6. RETROVIR [Suspect]
     Indication: HIV INFECTION
     Dosage: 300MG TWICE PER DAY
     Route: 048
     Dates: end: 20101117
  7. ALDACTONE [Suspect]
     Dosage: 50MG PER DAY
     Route: 048
     Dates: end: 20101117
  8. ZIAGEN [Concomitant]
     Indication: HIV INFECTION
     Dosage: 300MG TWICE PER DAY
     Route: 065
  9. EZETROL [Concomitant]
     Route: 065

REACTIONS (3)
  - HYPERKALAEMIA [None]
  - BLOOD CREATININE INCREASED [None]
  - HYPONATRAEMIA [None]
